FAERS Safety Report 10947028 (Version 1)
Quarter: 2015Q1

REPORT INFORMATION
  Report Type: Spontaneous
  Country: US (occurrence: None)
  Receive Date: 20150212
  Receipt Date: 20150212
  Transmission Date: 20150721
  Serious: No
  Sender: FDA-Public Use
  Company Number: TPA2011A06739

PATIENT
  Age: 22 Year
  Sex: Male
  Weight: 113.4 kg

DRUGS (7)
  1. SANDIMMUNE [Concomitant]
     Active Substance: CYCLOSPORINE
  2. COZAAR [Concomitant]
     Active Substance: LOSARTAN POTASSIUM
  3. TRICOR [Concomitant]
     Active Substance: FENOFIBRATE
  4. LISINOPRIL. [Concomitant]
     Active Substance: LISINOPRIL
  5. ULORIC [Suspect]
     Active Substance: FEBUXOSTAT
     Indication: GOUT
     Route: 048
     Dates: start: 201109
  6. PRILOSEC (OMEPRAZOLE) [Concomitant]
     Active Substance: OMEPRAZOLE MAGNESIUM
  7. LIPITOR [Concomitant]
     Active Substance: ATORVASTATIN CALCIUM

REACTIONS (1)
  - Gout [None]

NARRATIVE: CASE EVENT DATE: 2011
